FAERS Safety Report 25441178 (Version 1)
Quarter: 2025Q2

REPORT INFORMATION
  Report Type: Report from Study
  Country: BR (occurrence: BR)
  Receive Date: 20250616
  Receipt Date: 20250616
  Transmission Date: 20250716
  Serious: Yes (Other)
  Sender: ELI LILLY AND COMPANY
  Company Number: BR-Merck Healthcare KGaA-2025029077

PATIENT
  Age: 45 Year
  Sex: Male

DRUGS (1)
  1. CETUXIMAB [Suspect]
     Active Substance: CETUXIMAB
     Indication: Colon cancer metastatic
     Route: 042
     Dates: start: 2017

REACTIONS (1)
  - Neoplasm recurrence [Unknown]

NARRATIVE: CASE EVENT DATE: 20190101
